FAERS Safety Report 4464569-3 (Version None)
Quarter: 2004Q3

REPORT INFORMATION
  Report Type: 
  Country: None (occurrence: None)
  Receive Date: 20040929
  Receipt Date: 20040923
  Transmission Date: 20050211
  Serious: Yes (Hospitalization)
  Sender: FDA-Public Use
  Company Number: A01200404422

PATIENT
  Age: 67 Year
  Sex: Female

DRUGS (2)
  1. PLAQUINOL - (HYDROXYCHLOROQUINE SULFATE) - TABLET- 200MG [Suspect]
     Indication: RHEUMATOID ARTHRITIS
     Dosage: 200 MG, OD, ORAL
     Route: 048
     Dates: start: 20030825, end: 20040601
  2. DEFLAZACORT [Concomitant]

REACTIONS (7)
  - ANGINA PECTORIS [None]
  - CARDIAC FAILURE [None]
  - CORONARY ARTERY DISEASE [None]
  - MYOCARDIAL INFARCTION [None]
  - NECROSIS [None]
  - VASCULITIS NECROTISING [None]
  - VENTRICULAR DYSFUNCTION [None]
